FAERS Safety Report 12679679 (Version 4)
Quarter: 2019Q3

REPORT INFORMATION
  Report Type: Spontaneous
  Country: US (occurrence: US)
  Receive Date: 20160824
  Receipt Date: 20190725
  Transmission Date: 20191004
  Serious: No
  Sender: FDA-Public Use
  Company Number: US-PFIZER INC-2016398555

PATIENT
  Age: 56 Year
  Sex: Female

DRUGS (2)
  1. IBRANCE [Suspect]
     Active Substance: PALBOCICLIB
     Dosage: 100 MG, CYCLIC (1 TABLET BY MOUTH DAILY WITH FOOD FOR 21 DAYS, THEN OFF FOR 1 WEEK)
     Route: 048
  2. IBRANCE [Suspect]
     Active Substance: PALBOCICLIB
     Indication: BREAST CANCER FEMALE
     Dosage: 125 MG, CYCLIC (DAILY ON DAYS 1-21, THEN OFF FOR 1 WEEK, DAILY WITH FOOD AND AVOID GRAPEFRUIT)
     Route: 048
     Dates: start: 201608

REACTIONS (9)
  - Oral pain [Recovering/Resolving]
  - Swelling of eyelid [Unknown]
  - Weight decreased [Unknown]
  - Cough [Unknown]
  - Faeces discoloured [Unknown]
  - Pollakiuria [Unknown]
  - Fatigue [Unknown]
  - Hordeolum [Unknown]
  - Diarrhoea [Unknown]

NARRATIVE: CASE EVENT DATE: 201608
